FAERS Safety Report 16454117 (Version 2)
Quarter: 2019Q2

REPORT INFORMATION
  Report Type: Spontaneous
  Country: JP (occurrence: JP)
  Receive Date: 20190619
  Receipt Date: 20190624
  Transmission Date: 20190711
  Serious: Yes (Death)
  Sender: FDA-Public Use
  Company Number: JP-PFIZER INC-2019256193

PATIENT
  Sex: Female

DRUGS (1)
  1. VYNDAQEL [Suspect]
     Active Substance: TAFAMIDIS MEGLUMINE
     Dosage: UNK
     Route: 048
     Dates: start: 20150303

REACTIONS (1)
  - Death [Fatal]

NARRATIVE: CASE EVENT DATE: 20190608
